FAERS Safety Report 25739734 (Version 1)
Quarter: 2025Q3

REPORT INFORMATION
  Report Type: Spontaneous
  Country: JP (occurrence: JP)
  Receive Date: 20250829
  Receipt Date: 20250829
  Transmission Date: 20251021
  Serious: Yes (Hospitalization)
  Sender: CSL BEHRING
  Company Number: JP-BEH-2025217299

PATIENT
  Age: 84 Year
  Sex: Male

DRUGS (6)
  1. KORSUVA [Suspect]
     Active Substance: DIFELIKEFALIN ACETATE
     Indication: Pruritus
     Route: 042
  2. KORSUVA [Suspect]
     Active Substance: DIFELIKEFALIN ACETATE
     Route: 042
     Dates: start: 20250808, end: 20250814
  3. DARBEPOETIN ALFA [Concomitant]
     Active Substance: DARBEPOETIN ALFA
  4. LEVOCARNITINE [Concomitant]
     Active Substance: LEVOCARNITINE
  5. OXAROL [Concomitant]
     Active Substance: MAXACALCITOL
  6. CALCIUM CHLORIDE\POTASSIUM CHLORIDE\SODIUM ACETATE\SODIUM CHLORIDE [Concomitant]
     Active Substance: CALCIUM CHLORIDE\POTASSIUM CHLORIDE\SODIUM ACETATE\SODIUM CHLORIDE

REACTIONS (1)
  - Loss of consciousness [Recovered/Resolved]

NARRATIVE: CASE EVENT DATE: 20250808
